FAERS Safety Report 20953724 (Version 1)
Quarter: 2022Q2

REPORT INFORMATION
  Report Type: Spontaneous
  Country: US (occurrence: US)
  Receive Date: 20220613
  Receipt Date: 20220613
  Transmission Date: 20220721
  Serious: No
  Sender: FDA-Public Use
  Company Number: US-GLENMARK PHARMACEUTICALS-2022GMK071467

PATIENT

DRUGS (2)
  1. HEATHER [Suspect]
     Active Substance: NORETHINDRONE
     Indication: Oral contraception
     Dosage: 1 DOSAGE FORM, OD
     Route: 048
     Dates: start: 20211217
  2. HEATHER [Suspect]
     Active Substance: NORETHINDRONE
     Dosage: 1 DOSAGE FORM, OD
     Route: 048
     Dates: start: 20220320

REACTIONS (3)
  - Product dose omission issue [Unknown]
  - Abdominal pain [Not Recovered/Not Resolved]
  - Vaginal haemorrhage [Not Recovered/Not Resolved]

NARRATIVE: CASE EVENT DATE: 20220321
